FAERS Safety Report 6661140-X (Version None)
Quarter: 2010Q1

REPORT INFORMATION
  Report Type: 
  Country: None (occurrence: None)
  Receive Date: 20100331
  Receipt Date: 20100325
  Transmission Date: 20100710
  Serious: Yes (Hospitalization)
  Sender: FDA-Public Use
  Company Number: A0787876A

PATIENT
  Age: 49 Year
  Sex: Male

DRUGS (9)
  1. AVANDIA [Suspect]
     Route: 048
     Dates: start: 20020701, end: 20070401
  2. GLYBURIDE [Concomitant]
  3. ALTACE [Concomitant]
  4. NEXIUM [Concomitant]
  5. ZOCOR [Concomitant]
  6. NORVASC [Concomitant]
  7. VALIUM [Concomitant]
  8. CELEBREX [Concomitant]
  9. VALIUM [Concomitant]

REACTIONS (3)
  - CARDIAC FAILURE CONGESTIVE [None]
  - MYOCARDIAL INFARCTION [None]
  - MYOCARDIAL ISCHAEMIA [None]
